FAERS Safety Report 18616838 (Version 1)
Quarter: 2020Q4

REPORT INFORMATION
  Report Type: Spontaneous
  Country: US (occurrence: US)
  Receive Date: 20201215
  Receipt Date: 20201215
  Transmission Date: 20210114
  Serious: No
  Sender: FDA-Public Use
  Company Number: US-TEVA-2020-US-1858668

PATIENT
  Sex: Female

DRUGS (1)
  1. ENTECAVIR TEVA [Suspect]
     Active Substance: ENTECAVIR
     Route: 065

REACTIONS (1)
  - Abdominal discomfort [Unknown]
